FAERS Safety Report 8610958 (Version 3)
Quarter: 2012Q4

REPORT INFORMATION
  Report Type: 
  Country: NL (occurrence: NL)
  Receive Date: 20120612
  Receipt Date: 20120906
  Transmission Date: 20130627
  Serious: Yes (Other)
  Sender: FDA-Public Use
  Company Number: NL-GLAXOSMITHKLINE-B0807065A

PATIENT
  Age: 54 Year
  Sex: Female

DRUGS (5)
  1. FLIXONASE [Suspect]
     Indication: SEASONAL ALLERGY
     Dosage: 50MCG Twice per day
     Route: 045
     Dates: start: 201103, end: 20120604
  2. ACETYLSALICYLIC ACID [Concomitant]
     Dates: start: 20090805
  3. LEVOCETIRIZINE [Concomitant]
     Indication: HYPERSENSITIVITY
     Dates: start: 20110912
  4. ISORDIL [Concomitant]
     Dates: start: 20120826
  5. BUDESONIDE + FORMOTEROL [Concomitant]
     Indication: ASTHMA

REACTIONS (2)
  - Anosmia [Not Recovered/Not Resolved]
  - Ageusia [Not Recovered/Not Resolved]
